FAERS Safety Report 5647722-2 (Version None)
Quarter: 2008Q1

REPORT INFORMATION
  Report Type: 
  Country: None (occurrence: None)
  Receive Date: 20080303
  Receipt Date: 20080220
  Transmission Date: 20080703
  Serious: Yes (Death, Life-Threatening, Hospitalization)
  Sender: FDA-Public Use
  Company Number: JP-PFIZER INC-2008011801

PATIENT
  Sex: Male
  Weight: 49 kg

DRUGS (11)
  1. GABAPEN [Suspect]
     Indication: PAIN
     Route: 048
     Dates: start: 20080131, end: 20080201
  2. RISPERDAL [Suspect]
     Indication: INSOMNIA
     Route: 048
     Dates: start: 20080131, end: 20080201
  3. OXYCONTIN [Concomitant]
     Route: 048
     Dates: start: 20080117, end: 20080201
  4. FLUOROURACIL [Concomitant]
     Route: 048
     Dates: start: 20030328, end: 20080201
  5. ADALAT [Concomitant]
     Route: 048
     Dates: start: 20030328, end: 20080201
  6. VALSARTAN [Concomitant]
     Route: 048
     Dates: start: 20030328, end: 20080201
  7. THYRADIN S [Concomitant]
     Route: 048
     Dates: start: 20070921, end: 20080201
  8. LOXOPROFEN SODIUM [Concomitant]
     Route: 048
     Dates: start: 20071204, end: 20080201
  9. MUCOSTA [Concomitant]
     Route: 048
     Dates: start: 20071204, end: 20080201
  10. SENNOSIDES [Concomitant]
     Route: 048
     Dates: start: 20080131, end: 20080201
  11. DEZOLAM [Concomitant]
     Route: 048
     Dates: start: 20080117, end: 20080131

REACTIONS (3)
  - COMA [None]
  - PNEUMONIA [None]
  - RESPIRATORY FAILURE [None]
